FAERS Safety Report 21726080 (Version 1)
Quarter: 2022Q4

REPORT INFORMATION
  Report Type: Spontaneous
  Country: US (occurrence: None)
  Receive Date: 20221213
  Receipt Date: 20221213
  Transmission Date: 20230113
  Serious: Yes (Hospitalization)
  Sender: FDA-Public Use
  Company Number: None

PATIENT
  Age: 79 Year
  Sex: Male
  Weight: 58.3 kg

DRUGS (1)
  1. TAXOL [Suspect]
     Active Substance: PACLITAXEL
     Dates: end: 20221123

REACTIONS (4)
  - Respiratory tract congestion [None]
  - White blood cell count increased [None]
  - Treatment delayed [None]
  - Pneumothorax [None]

NARRATIVE: CASE EVENT DATE: 20221208
